FAERS Safety Report 7207413-3 (Version None)
Quarter: 2010Q4

REPORT INFORMATION
  Report Type: 
  Country: None (occurrence: None)
  Receive Date: 20101221
  Receipt Date: 20101217
  Transmission Date: 20110411
  Serious: Yes (Hospitalization)
  Sender: FDA-Public Use
  Company Number: SP03327

PATIENT
  Age: 60 Year
  Sex: Female

DRUGS (1)
  1. OSMOPREP [Suspect]
     Indication: COLONOSCOPY
     Dosage: 32 TABLET SAME DAY SPLIT DOSE REGIMEN, ORAL
     Route: 048
     Dates: start: 20101123, end: 20101123

REACTIONS (4)
  - COLITIS EROSIVE [None]
  - COLITIS ISCHAEMIC [None]
  - ENTEROCOLITIS HAEMORRHAGIC [None]
  - RECTAL POLYP [None]
